FAERS Safety Report 8655230 (Version 3)
Quarter: 2015Q2

REPORT INFORMATION
  Report Type: Spontaneous
  Country: US (occurrence: US)
  Receive Date: 20120709
  Receipt Date: 20150525
  Transmission Date: 20150821
  Serious: Yes (Other)
  Sender: FDA-Public Use
  Company Number: US-JNJFOC-20120700953

PATIENT
  Age: 45 Year
  Sex: Female
  Weight: 59.88 kg

DRUGS (8)
  1. FOLIC ACID. [Concomitant]
     Active Substance: FOLIC ACID
     Dosage: EVERY 4-6 HOURS
     Route: 048
     Dates: start: 2011
  2. FENTANYL. [Concomitant]
     Active Substance: FENTANYL
     Indication: PAIN
     Route: 058
     Dates: start: 2010
  3. NORCO [Concomitant]
     Active Substance: ACETAMINOPHEN\HYDROCODONE BITARTRATE
     Indication: PAIN
     Dosage: EVERY 4-6 HOURS
     Route: 048
     Dates: start: 2011
  4. D3-VICOTRAT [Concomitant]
     Indication: NUTRITIONAL SUPPLEMENTATION
     Dosage: EVERY 4-6 HOURS
     Route: 065
     Dates: start: 2011
  5. REMICADE [Suspect]
     Active Substance: INFLIXIMAB
     Indication: RHEUMATOID ARTHRITIS
     Route: 042
     Dates: start: 2012
  6. VITAMIN D [Concomitant]
     Active Substance: CHOLECALCIFEROL
     Indication: NUTRITIONAL SUPPLEMENTATION
     Dosage: EVERY 4-6 HOURS
     Route: 048
     Dates: start: 2011
  7. METHOTREXATE [Concomitant]
     Active Substance: METHOTREXATE
     Indication: RHEUMATOID ARTHRITIS
     Route: 058
     Dates: start: 2011
  8. NEURONTIN [Concomitant]
     Active Substance: GABAPENTIN
     Indication: PAIN
     Route: 048
     Dates: start: 2010

REACTIONS (4)
  - Discomfort [Not Recovered/Not Resolved]
  - Ear haemorrhage [Unknown]
  - Epistaxis [Unknown]
  - Systemic lupus erythematosus [Not Recovered/Not Resolved]

NARRATIVE: CASE EVENT DATE: 201205
